FAERS Safety Report 8025081-8 (Version None)
Quarter: 2012Q1

REPORT INFORMATION
  Report Type: 
  Country: None (occurrence: None)
  Receive Date: 20120103
  Receipt Date: 20111220
  Transmission Date: 20120608
  Serious: Yes (Other)
  Sender: FDA-Public Use
  Company Number: 2011MA017968

PATIENT
  Sex: Male

DRUGS (3)
  1. PRAMIPEXOLE DIHYDROCHLORIDE [Suspect]
     Indication: PARKINSON'S DISEASE
     Dosage: UNK;UNK
  2. LEVODOPA (LEVODOPA) [Suspect]
     Indication: PARKINSON'S DISEASE
     Dosage: UNK;UNK
  3. APOMORPHINE (APOMORPHINE) [Suspect]
     Indication: PARKINSON'S DISEASE
     Dosage: UNK;SC
     Route: 058

REACTIONS (5)
  - DOPAMINE DYSREGULATION SYNDROME [None]
  - OBSESSIVE-COMPULSIVE DISORDER [None]
  - INCORRECT DOSE ADMINISTERED [None]
  - HYPERSEXUALITY [None]
  - BINGE EATING [None]
